FAERS Safety Report 4297625-3 (Version None)
Quarter: 2004Q1

REPORT INFORMATION
  Report Type: 
  Country: None (occurrence: None)
  Receive Date: 20040213
  Receipt Date: 20040203
  Transmission Date: 20041129
  Serious: Yes (Hospitalization)
  Sender: FDA-Public Use
  Company Number: JP-JNJFOC-20040201906

PATIENT
  Age: 67 Year
  Sex: Female

DRUGS (4)
  1. 4297631-9-00-01 [Suspect]
     Indication: RHEUMATOID ARTHRITIS
     Dosage: 3 MG/KG. 1 IN 1 AS NECESSARY,
     Route: 041
     Dates: start: 20031212, end: 20031212
  2. 4297631-9-00-01 [Suspect]
     Indication: RHEUMATOID ARTHRITIS
     Dosage: 3 MG/KG. 1 IN 1 AS NECESSARY,
     Route: 041
     Dates: start: 20040109, end: 20040109
  3. RHEUMATREX [Suspect]
     Indication: DRUG USE FOR UNKNOWN INDICATION
  4. PREDNISOLONE [Suspect]
     Indication: DRUG USE FOR UNKNOWN INDICATION

REACTIONS (3)
  - BACTERIAL SEPSIS [None]
  - DRUG INTERACTION [None]
  - LIVER ABSCESS [None]
